FAERS Safety Report 7574882-9 (Version None)
Quarter: 2011Q2

REPORT INFORMATION
  Report Type: 
  Country: None (occurrence: None)
  Receive Date: 20110627
  Receipt Date: 20110620
  Transmission Date: 20111010
  Serious: Yes (Other)
  Sender: FDA-Public Use
  Company Number: US-US-EMD SERONO, INC.-7066716

PATIENT
  Sex: Female

DRUGS (4)
  1. IBUPROFEN [Concomitant]
  2. REBIF [Suspect]
     Indication: MULTIPLE SCLEROSIS
     Route: 058
     Dates: start: 20101217
  3. TYLENOL-500 [Concomitant]
  4. DILAUDID [Concomitant]

REACTIONS (5)
  - INJECTION SITE PAIN [None]
  - MULTIPLE SCLEROSIS RELAPSE [None]
  - INJECTION SITE ERYTHEMA [None]
  - OVARIAN CYST [None]
  - INJECTION SITE HAEMATOMA [None]
